FAERS Safety Report 15986205 (Version 5)
Quarter: 2022Q3

REPORT INFORMATION
  Report Type: Spontaneous
  Country: US (occurrence: US)
  Receive Date: 20190220
  Receipt Date: 20220808
  Transmission Date: 20221026
  Serious: Yes (Life-Threatening, Hospitalization, Other)
  Sender: FDA-Public Use
  Company Number: US-MLMSERVICE-20190212-1535156-1

PATIENT
  Age: 70 Year
  Sex: Female

DRUGS (7)
  1. TACROLIMUS [Suspect]
     Active Substance: TACROLIMUS
     Indication: Transplant rejection
     Dosage: UNK
  2. TACROLIMUS [Suspect]
     Active Substance: TACROLIMUS
     Indication: Immunosuppression
  3. HUMAN IMMUNOGLOBULIN G [Suspect]
     Active Substance: HUMAN IMMUNOGLOBULIN G
     Dosage: UNK
     Route: 042
  4. AZATHIOPRINE [Suspect]
     Active Substance: AZATHIOPRINE
     Indication: Transplant rejection
     Dosage: UNK
  5. AZATHIOPRINE [Suspect]
     Active Substance: AZATHIOPRINE
     Indication: Immunosuppression
  6. RITUXIMAB [Suspect]
     Active Substance: RITUXIMAB
     Indication: Immunosuppression
     Dosage: UNK
  7. RITUXIMAB [Suspect]
     Active Substance: RITUXIMAB
     Indication: Transplant rejection

REACTIONS (8)
  - Strongyloidiasis [Recovered/Resolved]
  - Klebsiella infection [Recovered/Resolved]
  - Large intestinal ulcer [Recovered/Resolved]
  - Gastrointestinal necrosis [Recovered/Resolved]
  - Lung infiltration [Recovered/Resolved]
  - Haemoptysis [Recovered/Resolved]
  - Colitis [Recovered/Resolved]
  - Hyponatraemia [Recovered/Resolved]
